FAERS Safety Report 11857788 (Version 1)
Quarter: 2015Q4

REPORT INFORMATION
  Report Type: Spontaneous
  Country: US (occurrence: None)
  Receive Date: 20151221
  Receipt Date: 20151221
  Transmission Date: 20160305
  Serious: Yes (Other)
  Sender: FDA-Public Use
  Company Number: None

PATIENT
  Age: 31 Year
  Sex: Female
  Weight: 97.98 kg

DRUGS (1)
  1. GLATOPA [Suspect]
     Active Substance: GLATIRAMER ACETATE
     Indication: MULTIPLE SCLEROSIS
     Route: 058
     Dates: start: 20150708, end: 20150709

REACTIONS (4)
  - Dyspnoea [None]
  - Throat tightness [None]
  - Chest discomfort [None]
  - Rash pruritic [None]

NARRATIVE: CASE EVENT DATE: 20150708
